FAERS Safety Report 10089215 (Version 1)
Quarter: 2014Q2

REPORT INFORMATION
  Report Type: Spontaneous
  Country: CY (occurrence: CY)
  Receive Date: 20140421
  Receipt Date: 20140421
  Transmission Date: 20141212
  Serious: Yes (Death)
  Sender: FDA-Public Use
  Company Number: CY-JNJFOC-20140407037

PATIENT
  Age: 44 Year
  Sex: Male
  Weight: 80 kg

DRUGS (3)
  1. RISPERDAL CONSTA [Suspect]
     Indication: SCHIZOPHRENIA
     Route: 030
     Dates: start: 20140403
  2. RISPERIDONE [Suspect]
     Indication: SCHIZOPHRENIA
     Route: 065
     Dates: start: 201404
  3. VENLAFAXINE [Suspect]
     Indication: DEPRESSION
     Route: 065
     Dates: start: 201404

REACTIONS (1)
  - Completed suicide [Fatal]
